FAERS Safety Report 17618512 (Version 1)
Quarter: 2020Q2

REPORT INFORMATION
  Report Type: Spontaneous
  Country: FR (occurrence: FR)
  Receive Date: 20200402
  Receipt Date: 20200402
  Transmission Date: 20200713
  Serious: Yes (Hospitalization)
  Sender: FDA-Public Use
  Company Number: FR-FERRINGPH-2020FE02169

PATIENT
  Age: 79 Year
  Sex: Male

DRUGS (3)
  1. PREDNISOLONE. [Concomitant]
     Active Substance: PREDNISOLONE
     Dates: start: 201912
  2. FIRMAGON [Suspect]
     Active Substance: DEGARELIX ACETATE
     Indication: PROSTATE CANCER
     Route: 058
     Dates: start: 201803
  3. ZYTIGA [Suspect]
     Active Substance: ABIRATERONE ACETATE
     Indication: PROSTATE CANCER
     Dosage: UNSPECIFIED
     Route: 048
     Dates: start: 201912

REACTIONS (1)
  - Angina pectoris [Recovered/Resolved with Sequelae]

NARRATIVE: CASE EVENT DATE: 202001
